FAERS Safety Report 23736008 (Version 3)
Quarter: 2024Q4

REPORT INFORMATION
  Report Type: Spontaneous
  Country: US (occurrence: US)
  Receive Date: 20240412
  Receipt Date: 20241029
  Transmission Date: 20250115
  Serious: No
  Sender: PHARMING GROUP
  Company Number: US-PHARMING-PHAUS2024000302

PATIENT

DRUGS (3)
  1. RUCONEST [Suspect]
     Active Substance: CONESTAT ALFA
     Indication: Hereditary angioedema
     Dosage: 2600 IU, TWICE WEEKLY AND AS NEEDED
     Route: 042
     Dates: start: 202007
  2. RUCONEST [Suspect]
     Active Substance: CONESTAT ALFA
     Dosage: 2600 IU, TWICE WEEKLY AND AS NEEDED
     Route: 042
     Dates: start: 202007
  3. RUCONEST [Suspect]
     Active Substance: CONESTAT ALFA
     Dosage: 2600 IU, TWICE WEEKLY AND PRN
     Route: 042
     Dates: start: 202007

REACTIONS (1)
  - Intentional product use issue [Unknown]
